FAERS Safety Report 7899098-8 (Version None)
Quarter: 2011Q4

REPORT INFORMATION
  Report Type: 
  Country: None (occurrence: None)
  Receive Date: 20111107
  Receipt Date: 20110912
  Transmission Date: 20120403
  Serious: No
  Sender: FDA-Public Use
  Company Number: US-AMGEN-USASP2011046537

PATIENT
  Age: 54 Year
  Sex: Male
  Weight: 260 kg

DRUGS (1)
  1. ENBREL [Suspect]
     Indication: PSORIASIS
     Dosage: 50 MG, QWK
     Dates: start: 20080519

REACTIONS (3)
  - RHINORRHOEA [None]
  - COUGH [None]
  - SEASONAL ALLERGY [None]
